FAERS Safety Report 18355464 (Version 2)
Quarter: 2021Q2

REPORT INFORMATION
  Report Type: Spontaneous
  Country: US (occurrence: US)
  Receive Date: 20201007
  Receipt Date: 20210604
  Transmission Date: 20210717
  Serious: Yes (Hospitalization)
  Sender: FDA-Public Use
  Company Number: US-JNJFOC-A-US2020-205310

PATIENT
  Age: 1 Year
  Sex: Female

DRUGS (9)
  1. UPTRAVI [Suspect]
     Active Substance: SELEXIPAG
     Dosage: 400 MCG, BID
     Route: 048
     Dates: start: 20200602
  2. SILDENAFIL. [Concomitant]
     Active Substance: SILDENAFIL
     Dosage: 6 MG, TID
     Route: 048
     Dates: start: 202002
  3. UPTRAVI [Suspect]
     Active Substance: SELEXIPAG
     Indication: PULMONARY ARTERIAL HYPERTENSION
     Route: 048
     Dates: start: 202004
  4. DIGOXIN. [Concomitant]
     Active Substance: DIGOXIN
     Dosage: 40.5 MCG, QD
     Route: 048
     Dates: start: 202004
  5. DIURIL [CHLOROTHIAZIDE SODIUM] [Concomitant]
     Dosage: 33 MG, TID
     Route: 048
     Dates: start: 202004
  6. PEPCID AC [Concomitant]
     Active Substance: FAMOTIDINE
     Dosage: 6 MG, BID
     Route: 048
     Dates: start: 202004
  7. LASIX [Concomitant]
     Active Substance: FUROSEMIDE
     Dosage: 6 MG, BID
     Route: 048
     Dates: start: 202002
  8. TRACLEER [Suspect]
     Active Substance: BOSENTAN
     Indication: PULMONARY ARTERIAL HYPERTENSION
     Dosage: 12 MG, BID
     Route: 048
     Dates: start: 202002
  9. UPTRAVI [Suspect]
     Active Substance: SELEXIPAG
     Dosage: 400 MCG, BID
     Route: 048
     Dates: start: 20200602

REACTIONS (7)
  - Pulmonary hypertension [Recovered/Resolved]
  - Rhinovirus infection [Recovered/Resolved]
  - Unevaluable event [Recovered/Resolved]
  - Pyrexia [Unknown]
  - Pneumonia viral [Recovered/Resolved]
  - Acute respiratory failure [Recovering/Resolving]
  - Off label use [Unknown]

NARRATIVE: CASE EVENT DATE: 20200327
